FAERS Safety Report 15628986 (Version 1)
Quarter: 2018Q4

REPORT INFORMATION
  Report Type: Spontaneous
  Country: AU (occurrence: AU)
  Receive Date: 20181116
  Receipt Date: 20181116
  Transmission Date: 20190205
  Serious: Yes (Other)
  Sender: FDA-Public Use
  Company Number: PHHY2018AU151321

PATIENT
  Age: 40 Year
  Sex: Male

DRUGS (1)
  1. IMATINIB. [Suspect]
     Active Substance: IMATINIB MESYLATE
     Indication: CHRONIC EOSINOPHILIC LEUKAEMIA
     Dosage: 400 MG, QD
     Route: 065
     Dates: start: 20160719, end: 201708

REACTIONS (5)
  - Hepatic steatosis [Recovered/Resolved]
  - Drug-induced liver injury [Recovered/Resolved]
  - Liver function test increased [Recovered/Resolved]
  - Eosinophil count abnormal [Recovered/Resolved]
  - Concomitant disease aggravated [Recovered/Resolved]

NARRATIVE: CASE EVENT DATE: 201708
